FAERS Safety Report 5314474-5 (Version None)
Quarter: 2007Q2

REPORT INFORMATION
  Report Type: 
  Country: None (occurrence: None)
  Receive Date: 20070502
  Receipt Date: 20070112
  Transmission Date: 20071010
  Serious: No
  Sender: FDA-Public Use
  Company Number: US-GLAXOSMITHKLINE-A0635532A

PATIENT
  Sex: Male

DRUGS (3)
  1. AMOXIL [Suspect]
     Dosage: 500MG TWICE PER DAY
     Route: 048
  2. UNKNOWN MEDICATION [Concomitant]
  3. NEXIUM [Concomitant]

REACTIONS (2)
  - DRUG INEFFECTIVE [None]
  - HELICOBACTER INFECTION [None]
